FAERS Safety Report 8922514 (Version 2)
Quarter: 2012Q4

REPORT INFORMATION
  Report Type: 
  Country: ZM (occurrence: ZM)
  Receive Date: 20121123
  Receipt Date: 20121126
  Transmission Date: 20130627
  Serious: Yes (Death, Hospitalization, Other)
  Sender: FDA-Public Use
  Company Number: PHHY2012ZM105430

PATIENT
  Sex: Male

DRUGS (1)
  1. GLIVEC [Suspect]
     Indication: CHRONIC MYELOID LEUKAEMIA
     Dosage: 400 mg, UNK
     Route: 048
     Dates: end: 201104

REACTIONS (5)
  - Anaemia [Fatal]
  - Platelet count decreased [Unknown]
  - Splenomegaly [Unknown]
  - Pancytopenia [Unknown]
  - Abdominal pain [Unknown]
